FAERS Safety Report 9370100 (Version 1)
Quarter: 2013Q2

REPORT INFORMATION
  Report Type: Spontaneous
  Country: US (occurrence: None)
  Receive Date: 20130621
  Receipt Date: 20130621
  Transmission Date: 20140414
  Serious: Yes (Hospitalization)
  Sender: FDA-Public Use
  Company Number: 2013AP006060

PATIENT
  Age: 28 Year
  Sex: Male

DRUGS (1)
  1. GABAPENTIN [Suspect]

REACTIONS (6)
  - Headache [None]
  - Myoclonus [None]
  - Ataxia [None]
  - Vision blurred [None]
  - Hyperreflexia [None]
  - Drug abuse [None]
